FAERS Safety Report 21243358 (Version 1)
Quarter: 2022Q3

REPORT INFORMATION
  Report Type: Report from Study
  Country: US (occurrence: US)
  Receive Date: 20220823
  Receipt Date: 20220823
  Transmission Date: 20221027
  Serious: Yes (Death, Hospitalization)
  Sender: FDA-Public Use
  Company Number: US-SAMOHPHARM-2022003329

PATIENT

DRUGS (17)
  1. CYSTADANE [Suspect]
     Active Substance: BETAINE
     Indication: Homocystinuria
     Dosage: 8 SCOOPS THREE TIMES DAILY
     Route: 048
     Dates: start: 1996
  2. CYSTADANE [Suspect]
     Active Substance: BETAINE
     Dosage: 8 GRAM, TID
     Route: 048
     Dates: start: 20150707, end: 20220731
  3. AMLODIPINE [Concomitant]
     Active Substance: AMLODIPINE BESYLATE
     Indication: Hypertension
  4. ASPIRIN [Concomitant]
     Active Substance: ASPIRIN
     Indication: Cerebrovascular accident
  5. BELSOMRA [Concomitant]
     Active Substance: SUVOREXANT
     Indication: Insomnia
  6. DICYCLOMINE [Concomitant]
     Active Substance: DICYCLOMINE HYDROCHLORIDE
     Indication: Irritable bowel syndrome
  7. CYMBALTA [Concomitant]
     Active Substance: DULOXETINE HYDROCHLORIDE
     Indication: Depression
     Dosage: UNK
  8. FENTANYL [Concomitant]
     Active Substance: FENTANYL
     Indication: Pain
  9. FUROSEMIDE [Concomitant]
     Active Substance: FUROSEMIDE
     Indication: Hypertension
  10. GABAPENTIN [Concomitant]
     Active Substance: GABAPENTIN
     Indication: Neuropathy peripheral
  11. LIPITOR [Concomitant]
     Active Substance: ATORVASTATIN CALCIUM
     Indication: Blood cholesterol increased
  12. LYRICA [Concomitant]
     Active Substance: PREGABALIN
     Indication: Neuropathy peripheral
  13. METOPROLOL [Concomitant]
     Active Substance: METOPROLOL
     Indication: Hypertension
  14. OXYCODONE [Concomitant]
     Active Substance: OXYCODONE
     Indication: Pain
     Dosage: UNK
  15. OMEPRAZOLE [Concomitant]
     Active Substance: OMEPRAZOLE
     Indication: Gastrooesophageal reflux disease
  16. XANAX [Concomitant]
     Active Substance: ALPRAZOLAM
     Indication: Obsessive-compulsive disorder
     Dosage: UNK
  17. ZOLOFT [Concomitant]
     Active Substance: SERTRALINE HYDROCHLORIDE
     Indication: Obsessive-compulsive disorder

REACTIONS (3)
  - Fall [Fatal]
  - Wrist surgery [Recovering/Resolving]
  - Off label use [Recovered/Resolved]

NARRATIVE: CASE EVENT DATE: 19960101
